FAERS Safety Report 14656067 (Version 1)
Quarter: 2018Q1

REPORT INFORMATION
  Report Type: Spontaneous
  Country: IT (occurrence: IT)
  Receive Date: 20180319
  Receipt Date: 20180319
  Transmission Date: 20180509
  Serious: Yes (Hospitalization)
  Sender: FDA-Public Use
  Company Number: IT-BAYER-2018-046786

PATIENT
  Age: 17 Year
  Sex: Female

DRUGS (4)
  1. METAMIZOLE [Concomitant]
     Active Substance: METAMIZOLE
     Dosage: 20 DF, UNK
  2. ASPIRIN. [Suspect]
     Active Substance: ASPIRIN
     Indication: DRUG ABUSE
     Dosage: 20000 MG, ONCE
     Route: 048
     Dates: start: 20180304, end: 20180304
  3. FLUOXETINE [Concomitant]
     Active Substance: FLUOXETINE HYDROCHLORIDE
     Indication: BULIMIA NERVOSA
     Dosage: 15 MG, ONCE
     Route: 048
     Dates: start: 20180228, end: 20180304
  4. ANTINEVRALGIC [Concomitant]
     Active Substance: ASPIRIN\CAFFEINE\PHENACETIN
     Dosage: 20 DF, UNK

REACTIONS (2)
  - Vomiting [Unknown]
  - Chest discomfort [Unknown]

NARRATIVE: CASE EVENT DATE: 20180304
